FAERS Safety Report 14114238 (Version 1)
Quarter: 2017Q4

REPORT INFORMATION
  Report Type: Other
  Country: DK (occurrence: DK)
  Receive Date: 20171023
  Receipt Date: 20171023
  Transmission Date: 20180321
  Serious: Yes (Hospitalization, Other)
  Sender: FDA-Public Use
  Company Number: DK-ASTELLAS-2017US042106

PATIENT
  Age: 70 Year
  Sex: Male

DRUGS (12)
  1. BENADRYL                           /00945501/ [Concomitant]
     Active Substance: ACRIVASTINE
     Indication: SEASONAL ALLERGY
     Route: 048
     Dates: start: 20160116
  2. SPIRIVA [Concomitant]
     Active Substance: TIOTROPIUM BROMIDE MONOHYDRATE
     Indication: CHRONIC OBSTRUCTIVE PULMONARY DISEASE
     Dosage: 2 DF, ONCE DAILY (2.5 UG)
     Route: 055
     Dates: start: 20160823
  3. ENACODAN [Suspect]
     Active Substance: ENALAPRIL MALEATE
     Indication: HYPERTENSION
     Dosage: 15 MG, TWICE DAILY (STYRKE: 10 MG)
     Route: 048
     Dates: end: 20170811
  4. EUTHYROX [Concomitant]
     Active Substance: LEVOTHYROXINE SODIUM
     Indication: HYPOTHYROIDISM
     Dosage: 75 ?G, ONCE DAILY (1.5 TABLET FOR SENGETID. STYRKE: 50 UG.)
     Route: 048
     Dates: start: 20140717
  5. METOPROLOL TARTRATE. [Concomitant]
     Active Substance: METOPROLOL TARTRATE
     Indication: HYPERTENSION
     Route: 048
     Dates: start: 20160317
  6. SIMVASTATIN ACTAVIS [Concomitant]
     Active Substance: SIMVASTATIN
     Indication: HYPERCHOLESTEROLAEMIA
     Route: 048
     Dates: start: 20140911
  7. XTANDI [Suspect]
     Active Substance: ENZALUTAMIDE
     Indication: PROSTATE CANCER
     Route: 048
     Dates: start: 20170628, end: 20170811
  8. SYMBICORT [Concomitant]
     Active Substance: BUDESONIDE\FORMOTEROL FUMARATE DIHYDRATE
     Indication: ASTHMA
     Dosage: 1 DF, ONCE DAILY (4.5+80 MIKROGRAM/DOSIS)
     Route: 055
     Dates: start: 20160808
  9. FRAGMIN [Concomitant]
     Active Substance: DALTEPARIN SODIUM
     Indication: THROMBOSIS
     Dosage: 1 DF, ONCE DAILY (1 INJEKTIONSSPR?JTE DAGLIGT KL.19.STYRKE: 12.500 ANTI-XA IE)
     Route: 058
     Dates: start: 20170703
  10. CORDAN                             /00133102/ [Concomitant]
     Indication: HEART RATE IRREGULAR
     Dosage: 200 MG, HVER ANDEN DAG GIVES 1 TABLET. HVER ANDEN DAG 1/2 TABLET
     Route: 048
     Dates: start: 20141117
  11. FIRMAGON                           /01764802/ [Concomitant]
     Indication: PROSTATE CANCER
     Route: 058
     Dates: start: 20160318
  12. FURIX [Concomitant]
     Active Substance: FUROSEMIDE
     Indication: POLYURIA
     Dosage: 20 MG, ONCE DAILY (1 TABLET MORGEN)
     Route: 048
     Dates: start: 20170228

REACTIONS (3)
  - Dyspnoea [Recovered/Resolved]
  - Anaphylactic reaction [Recovered/Resolved]
  - Oropharyngeal oedema [Recovered/Resolved]

NARRATIVE: CASE EVENT DATE: 20170811
